FAERS Safety Report 5290337-9 (Version None)
Quarter: 2007Q2

REPORT INFORMATION
  Report Type: 
  Country: None (occurrence: None)
  Receive Date: 20070409
  Receipt Date: 20070405
  Transmission Date: 20071010
  Serious: Yes (Death, Hospitalization)
  Sender: FDA-Public Use
  Company Number: IT-ELI_LILLY_AND_COMPANY-IT200704001158

PATIENT
  Age: 68 Year
  Sex: Male

DRUGS (5)
  1. GEMZAR [Suspect]
     Indication: NON-SMALL CELL LUNG CANCER
     Dosage: 1600 MG, OTHER
     Route: 042
     Dates: start: 20070326
  2. CARBOPLATIN [Concomitant]
     Indication: NON-SMALL CELL LUNG CANCER
     Dates: start: 20070327
  3. CONTRAMAL [Concomitant]
     Indication: CHEST PAIN
     Dosage: UNK GTT, UNK
  4. LYRICA [Concomitant]
     Indication: CHEST PAIN
  5. METACEN 50 [Concomitant]
     Indication: CHEST PAIN

REACTIONS (1)
  - TOXIC EPIDERMAL NECROLYSIS [None]
